FAERS Safety Report 15620898 (Version 1)
Quarter: 2018Q4

REPORT INFORMATION
  Report Type: Spontaneous
  Country: US (occurrence: US)
  Receive Date: 20181115
  Receipt Date: 20181115
  Transmission Date: 20190205
  Serious: No
  Sender: FDA-Public Use
  Company Number: US-SA-2018SA312916

PATIENT

DRUGS (4)
  1. ZYRTEC [Concomitant]
     Active Substance: CETIRIZINE HYDROCHLORIDE
     Dosage: UNK UNK, UNK
     Route: 065
  2. ALLEGRA ALLERGY [Suspect]
     Active Substance: FEXOFENADINE HYDROCHLORIDE
     Indication: HYPERSENSITIVITY
     Dosage: UNK UNK, UNK
     Route: 065
  3. BENADRYL ALLERGY [CETIRIZINE HYDROCHLORIDE] [Concomitant]
     Dosage: UNK UNK, UNK
     Route: 065
  4. CLARITIN ALLERGIC [Concomitant]
     Dosage: UNK UNK, UNK
     Route: 065

REACTIONS (1)
  - Drug ineffective [Unknown]
